FAERS Safety Report 9608583 (Version 4)
Quarter: 2015Q1

REPORT INFORMATION
  Report Type: Spontaneous
  Country: FR (occurrence: None)
  Receive Date: 20131007
  Receipt Date: 20150204
  Transmission Date: 20150721
  Serious: Yes (Hospitalization)
  Sender: FDA-Public Use
  Company Number: 2013FR0371

PATIENT
  Age: 46 Year
  Sex: Male

DRUGS (12)
  1. ROVAMYCIN (SPIRAMYCIN) [Concomitant]
  2. FORADRIL (FORMOTEROL FUMARATE) [Concomitant]
  3. POLARAMINE [Concomitant]
     Active Substance: DEXCHLORPHENIRAMINE MALEATE
  4. BETNEVAL (BETAMETHASONE VALERATE) [Concomitant]
  5. CORTANCYL (PREDNISONE) [Concomitant]
     Active Substance: PREDNISONE
  6. SPIRIVA [Concomitant]
     Active Substance: TIOTROPIUM BROMIDE MONOHYDRATE
  7. HYDROCORTISON (HYDROCORTISONE) [Concomitant]
  8. AUGMENTIN [Concomitant]
     Active Substance: AMOXICILLIN\CLAVULANATE POTASSIUM
  9. KINERET [Suspect]
     Active Substance: ANAKINRA
     Indication: JUVENILE IDIOPATHIC ARTHRITIS
     Dosage: 100 MG (100 MG, 1 IN 1 D) SUBCUTANEOUS
     Route: 058
     Dates: start: 20130801, end: 20130810
  10. METHOTREXAT (METHOTREXATE) [Concomitant]
  11. SOLU-MEDROL [Concomitant]
     Active Substance: METHYLPREDNISOLONE SODIUM SUCCINATE
  12. ATARAX [Concomitant]
     Active Substance: HYDROXYZINE\HYDROXYZINE HYDROCHLORIDE

REACTIONS (12)
  - Dyspnoea [None]
  - Pyrexia [None]
  - Hepatomegaly [None]
  - Atypical pneumonia [None]
  - Injection site inflammation [None]
  - Hepatic steatosis [None]
  - Alveolitis allergic [None]
  - Incorrect route of drug administration [None]
  - Injection site extravasation [None]
  - Injection site reaction [None]
  - Systemic inflammatory response syndrome [None]
  - Drug hypersensitivity [None]

NARRATIVE: CASE EVENT DATE: 20130810
